FAERS Safety Report 25585374 (Version 1)
Quarter: 2025Q3

REPORT INFORMATION
  Report Type: Spontaneous
  Country: US (occurrence: None)
  Receive Date: 20250718
  Receipt Date: 20250718
  Transmission Date: 20251021
  Serious: No
  Sender: FDA-CTU
  Company Number: None

PATIENT
  Sex: Female

DRUGS (4)
  1. METHYLCOBALAMIN\NADIDE\TIRZEPATIDE [Suspect]
     Active Substance: METHYLCOBALAMIN\NADIDE\TIRZEPATIDE
     Indication: Obesity
     Route: 058
     Dates: start: 20250502, end: 20250526
  2. METHYLCOBALAMIN\NADIDE\TIRZEPATIDE [Suspect]
     Active Substance: METHYLCOBALAMIN\NADIDE\TIRZEPATIDE
     Indication: Insulin resistance
  3. METHYLCOBALAMIN\NADIDE\TIRZEPATIDE [Suspect]
     Active Substance: METHYLCOBALAMIN\NADIDE\TIRZEPATIDE
     Indication: Obesity
     Route: 058
     Dates: start: 20250603, end: 20250624
  4. METHYLCOBALAMIN\NADIDE\TIRZEPATIDE [Suspect]
     Active Substance: METHYLCOBALAMIN\NADIDE\TIRZEPATIDE
     Indication: Insulin resistance

REACTIONS (4)
  - Product compounding quality issue [None]
  - Nausea [None]
  - Vomiting [None]
  - Fatigue [None]

NARRATIVE: CASE EVENT DATE: 20250718
